FAERS Safety Report 7933337-X (Version None)
Quarter: 2011Q4

REPORT INFORMATION
  Report Type: 
  Country: None (occurrence: None)
  Receive Date: 20111122
  Receipt Date: 20111117
  Transmission Date: 20120403
  Serious: Yes (Death, Hospitalization)
  Sender: FDA-Public Use
  Company Number: PHHY2011FR21042

PATIENT
  Sex: Female

DRUGS (15)
  1. EXELON [Suspect]
     Dosage: 4.6 MG, QD
     Route: 062
     Dates: end: 20110114
  2. SIMVASTATIN [Suspect]
     Dosage: UNK
     Dates: start: 20110123
  3. ISOSORBIDE DINITRATE [Concomitant]
     Route: 048
  4. OMEPRAZOLE [Suspect]
     Dosage: UNK
     Dates: end: 20110114
  5. ESCITALOPRAM OXALATE [Suspect]
     Dosage: 15 MG DAILY
     Dates: start: 20110114
  6. SECTRAL [Concomitant]
     Dosage: UNK
     Dates: start: 20110123
  7. AMLODIPINE BESYLATE [Concomitant]
     Dosage: UNK
     Dates: start: 20110123
  8. EXELON [Suspect]
     Dosage: 4.6 MG, QD
     Route: 062
     Dates: start: 20110123
  9. SIMVASTATIN [Suspect]
     Dosage: UNK
     Dates: start: 20110114
  10. ESCITALOPRAM OXALATE [Suspect]
     Dosage: 15 MG DAILY
     Dates: start: 20110123
  11. MEMANTINE HYDROCHLORIDE [Suspect]
     Dosage: 20 MG DAILY
     Dates: start: 20110114
  12. MEMANTINE HYDROCHLORIDE [Suspect]
     Dosage: 20 MG DAILY
     Dates: start: 20110123
  13. ALLOPURINOL [Suspect]
     Dosage: UNK
     Dates: end: 20110114
  14. AUGMENTIN '125' [Suspect]
     Indication: PNEUMONIA
     Dosage: 2 G, DAILY
     Dates: start: 20110110, end: 20110114
  15. ISOSORBIDE DINITRATE [Concomitant]
     Dosage: 1 DF, QD
     Route: 048

REACTIONS (15)
  - DEHYDRATION [None]
  - PSYCHOMOTOR HYPERACTIVITY [None]
  - PULMONARY EMBOLISM [None]
  - ABNORMAL BEHAVIOUR [None]
  - HYPERNATRAEMIA [None]
  - THROMBOCYTOPENIA [None]
  - LEUKOCYTOSIS [None]
  - PNEUMONIA [None]
  - PRODUCTIVE COUGH [None]
  - CYTOLYTIC HEPATITIS [None]
  - DELIRIUM [None]
  - CONFUSIONAL STATE [None]
  - ATRIAL FIBRILLATION [None]
  - DECREASED APPETITE [None]
  - DIET REFUSAL [None]
